FAERS Safety Report 10042644 (Version 2)
Quarter: 2014Q1

REPORT INFORMATION
  Report Type: Report from Study
  Country: BE (occurrence: BE)
  Receive Date: 20140327
  Receipt Date: 20140327
  Transmission Date: 20141002
  Serious: Yes (Hospitalization)
  Sender: FDA-Public Use
  Company Number: BE-BRISTOL-MYERS SQUIBB COMPANY-20218574

PATIENT
  Age: 51 Year
  Sex: Male
  Weight: 108 kg

DRUGS (13)
  1. NIVOLUMAB [Suspect]
     Indication: METASTATIC MALIGNANT MELANOMA
     Route: 042
     Dates: start: 20131108, end: 20140207
  2. IPILIMUMAB [Suspect]
     Indication: METASTATIC MALIGNANT MELANOMA
     Route: 042
     Dates: start: 20131108, end: 20140207
  3. BLINDED: PLACEBO [Suspect]
     Indication: METASTATIC MALIGNANT MELANOMA
     Route: 042
     Dates: start: 20131108, end: 20140207
  4. BUPROPION [Concomitant]
     Dates: start: 201106
  5. RISPERIDONE [Concomitant]
     Dosage: 20DEC13
     Dates: start: 201106
  6. METHYLPREDNISOLONE [Concomitant]
     Dosage: 125MG IV 12FEB14-20FEB14?64MG PO FROM 21FEB14
     Route: 042
     Dates: start: 20140212
  7. AMOXICLAV [Concomitant]
     Dosage: SANDOZ
  8. LEVOTHYROXINE [Concomitant]
     Dates: start: 20140103
  9. FLUCONAZOLE [Concomitant]
  10. PARACETAMOL [Concomitant]
  11. PANTOPRAZOLE [Concomitant]
  12. ALIZAPRIDE [Concomitant]
  13. METOCLOPRAMIDE [Concomitant]

REACTIONS (2)
  - Gastritis [Recovered/Resolved]
  - Diarrhoea [Recovered/Resolved]
